FAERS Safety Report 4812009-4 (Version None)
Quarter: 2005Q4

REPORT INFORMATION
  Report Type: 
  Country: None (occurrence: None)
  Receive Date: 20051027
  Receipt Date: 20051027
  Transmission Date: 20060501
  Serious: Yes (Other)
  Sender: FDA-Public Use
  Company Number: None

PATIENT
  Age: 17 Year
  Sex: Female

DRUGS (1)
  1. MEDROXYPROGESTERONE [Suspect]
     Indication: CONTRACEPTION
     Dosage: 150 MG   Q 3 MONTHS   IM   (APPROXIMATELY 1 YEAR)
     Route: 030

REACTIONS (2)
  - PREGNANCY WITH INJECTABLE CONTRACEPTIVE [None]
  - THERAPEUTIC RESPONSE UNEXPECTED WITH DRUG SUBSTITUTION [None]
